FAERS Safety Report 20192439 (Version 2)
Quarter: 2021Q4

REPORT INFORMATION
  Report Type: Spontaneous
  Country: LT (occurrence: LT)
  Receive Date: 20211216
  Receipt Date: 20211229
  Transmission Date: 20220303
  Serious: Yes (Life-Threatening, Other)
  Sender: FDA-Public Use
  Company Number: LT-TEVA-2021-LT-1986888

PATIENT
  Age: 38 Year
  Sex: Female

DRUGS (3)
  1. LEUCOVORIN [Suspect]
     Active Substance: LEUCOVORIN
     Indication: Adenocarcinoma gastric
     Route: 065
  2. FLUOROURACIL [Suspect]
     Active Substance: FLUOROURACIL
     Indication: Adenocarcinoma gastric
     Route: 065
  3. OXALIPLATIN [Suspect]
     Active Substance: OXALIPLATIN
     Indication: Adenocarcinoma gastric
     Route: 065

REACTIONS (1)
  - Drug ineffective [Unknown]
